FAERS Safety Report 14384176 (Version 3)
Quarter: 2018Q3

REPORT INFORMATION
  Report Type: Spontaneous
  Country: US (occurrence: US)
  Receive Date: 20180115
  Receipt Date: 20180810
  Transmission Date: 20181010
  Serious: No
  Sender: FDA-Public Use
  Company Number: US-PFIZER INC-2018016576

PATIENT
  Age: 56 Year
  Sex: Female

DRUGS (1)
  1. METHOTREXATE SODIUM. [Suspect]
     Active Substance: METHOTREXATE SODIUM
     Indication: RHEUMATOID ARTHRITIS
     Dosage: GOT UP TO 9?10MG A WEEK

REACTIONS (4)
  - Hypoaesthesia [Unknown]
  - Malaise [Unknown]
  - Drug ineffective [Unknown]
  - Mobility decreased [Unknown]
